FAERS Safety Report 4523357-X (Version None)
Quarter: 2004Q4

REPORT INFORMATION
  Report Type: 
  Country: None (occurrence: None)
  Receive Date: 20041209
  Receipt Date: 20041201
  Transmission Date: 20050328
  Serious: Yes (Hospitalization)
  Sender: FDA-Public Use
  Company Number: TPA2004A01497

PATIENT
  Age: 75 Year
  Sex: Female
  Weight: 76.2043 kg

DRUGS (7)
  1. ACTOS [Suspect]
     Indication: DIABETES MELLITUS NON-INSULIN-DEPENDENT
     Dosage: 15 MG, 1 IN 1 D, PER ORAL
     Route: 048
     Dates: start: 20030601
  2. MICARDIS [Concomitant]
  3. TRICOR [Concomitant]
  4. CRESTOR [Concomitant]
  5. DYAZIDE [Concomitant]
  6. NORVASC [Concomitant]
  7. SYNTHROID [Concomitant]

REACTIONS (1)
  - LIPOMA EXCISION [None]
